FAERS Safety Report 5402119-5 (Version None)
Quarter: 2007Q3

REPORT INFORMATION
  Report Type: 
  Country: None (occurrence: None)
  Receive Date: 20070727
  Receipt Date: 20070716
  Transmission Date: 20080115
  Serious: Yes (Death, Hospitalization)
  Sender: FDA-Public Use
  Company Number: CLOF-10500

PATIENT
  Age: 76 Year
  Sex: Male

DRUGS (21)
  1. CLOFARABINE (BLINDED) MFR: GENZYME [Suspect]
     Indication: ACUTE MYELOID LEUKAEMIA
     Dosage: 40 MG/M2 QD X 5 IV
     Route: 042
     Dates: start: 20070129, end: 20070202
  2. CYTARABINE [Suspect]
     Indication: ACUTE MYELOID LEUKAEMIA
     Dosage: 1000 MG/M2 QD X 5 IV
     Route: 042
     Dates: start: 20070129, end: 20070202
  3. FLOMAX [Concomitant]
  4. ITRACONAZOLE [Concomitant]
  5. PREDNISONE TAB [Concomitant]
  6. PROSCAR [Concomitant]
  7. GLIPIZIDE [Concomitant]
  8. SPORANOX [Concomitant]
  9. TOPROL-XL [Concomitant]
  10. CIPRAFLOXACIN [Concomitant]
  11. POTASSIUM CHLORIDE [Concomitant]
  12. ACYCLOVIR [Concomitant]
  13. PREVACID [Concomitant]
  14. ZYVOX [Concomitant]
  15. ROXICODONE [Concomitant]
  16. DIFLUCAN [Concomitant]
  17. NEUPOGEN [Concomitant]
  18. HYDROCORTISONE [Concomitant]
  19. SENNA [Concomitant]
  20. COLACE [Concomitant]
  21. MAGNESIUM OXIDE [Concomitant]

REACTIONS (36)
  - ACTINIC KERATOSIS [None]
  - ATELECTASIS [None]
  - BIOPSY BONE MARROW ABNORMAL [None]
  - BLOOD ALKALINE PHOSPHATASE INCREASED [None]
  - BONE MARROW FAILURE [None]
  - CLOSTRIDIUM DIFFICILE COLITIS [None]
  - DIZZINESS [None]
  - DRUG TOXICITY [None]
  - DYSPHAGIA [None]
  - DYSURIA [None]
  - ECCHYMOSIS [None]
  - ENTEROCOCCAL BACTERAEMIA [None]
  - ENTEROCOCCAL SEPSIS [None]
  - FAECAL INCONTINENCE [None]
  - FALL [None]
  - FATIGUE [None]
  - HAEMATEMESIS [None]
  - HERPES DERMATITIS [None]
  - HYPOTENSION [None]
  - KERATITIS HERPETIC [None]
  - MUSCULAR WEAKNESS [None]
  - NEUROPATHY PERIPHERAL [None]
  - NORMOCHROMIC NORMOCYTIC ANAEMIA [None]
  - PANCYTOPENIA [None]
  - PLEURAL EFFUSION [None]
  - PNEUMONIA [None]
  - PRESYNCOPE [None]
  - PULMONARY OEDEMA [None]
  - PURPURA [None]
  - RASH ERYTHEMATOUS [None]
  - SPLENIC INFARCTION [None]
  - SQUAMOUS CELL CARCINOMA [None]
  - STAPHYLOCOCCAL INFECTION [None]
  - URINARY INCONTINENCE [None]
  - URINARY TRACT INFECTION [None]
  - VISION BLURRED [None]
